FAERS Safety Report 5531909-3 (Version None)
Quarter: 2007Q4

REPORT INFORMATION
  Report Type: 
  Country: None (occurrence: None)
  Receive Date: 20071203
  Receipt Date: 20071122
  Transmission Date: 20080405
  Serious: Yes (Other)
  Sender: FDA-Public Use
  Company Number: ES-JNJFOC-20071110552

PATIENT
  Age: 31 Year
  Sex: Female

DRUGS (4)
  1. ACETAMINOPHEN AND TRAMADOL HCL [Suspect]
     Indication: INTERVERTEBRAL DISC PROTRUSION
     Dosage: 37.5MG/325MG
     Route: 048
  2. ARTHROTEC [Concomitant]
     Indication: INTERVERTEBRAL DISC PROTRUSION
     Dosage: 1 TABLET AS NEEDED
     Route: 065
  3. LYRICA [Concomitant]
     Indication: INTERVERTEBRAL DISC PROTRUSION
     Route: 065
  4. DIAZEPAM [Concomitant]
     Indication: INTERVERTEBRAL DISC PROTRUSION
     Dosage: AS NEEDED
     Route: 065

REACTIONS (2)
  - ABORTION SPONTANEOUS [None]
  - DRUG EXPOSURE DURING PREGNANCY [None]
